FAERS Safety Report 7382044-3 (Version None)
Quarter: 2011Q1

REPORT INFORMATION
  Report Type: 
  Country: None (occurrence: None)
  Receive Date: 20110329
  Receipt Date: 20110322
  Transmission Date: 20110831
  Serious: Yes (Other)
  Sender: FDA-Public Use
  Company Number: US-US-EMD SERONO, INC.-7049723

PATIENT
  Sex: Female
  Weight: 127 kg

DRUGS (3)
  1. MOTRIN [Concomitant]
     Indication: PREMEDICATION
  2. REBIF [Suspect]
     Indication: PRODUCT USED FOR UNKNOWN INDICATION
     Route: 058
     Dates: start: 20101120
  3. SYNTHROID [Concomitant]
     Dates: start: 19620101

REACTIONS (5)
  - IMPAIRED HEALING [None]
  - NEOPLASM [None]
  - BLISTER [None]
  - HANGNAIL [None]
  - FALL [None]
